FAERS Safety Report 6454861-5 (Version None)
Quarter: 2009Q4

REPORT INFORMATION
  Report Type: 
  Country: None (occurrence: None)
  Receive Date: 20091124
  Receipt Date: 20091117
  Transmission Date: 20100525
  Serious: Yes (Other)
  Sender: FDA-Public Use
  Company Number: BR-PFIZER INC-2009281114

PATIENT
  Age: 31 Year
  Sex: Female
  Weight: 70 kg

DRUGS (4)
  1. CELEBRA [Suspect]
     Indication: MYALGIA
     Dosage: 200 MG, UNK
     Route: 048
     Dates: start: 20091008
  2. CATAFLAM [Concomitant]
     Dosage: UNK
  3. DICLOFENAC SODIUM [Concomitant]
     Indication: PAIN
     Dosage: UNK
  4. ALL OTHER THERAPEUTIC PRODUCTS [Concomitant]
     Dosage: UNK

REACTIONS (5)
  - ABDOMINAL PAIN UPPER [None]
  - DELIRIUM [None]
  - EYE DISORDER [None]
  - INAPPROPRIATE AFFECT [None]
  - VISUAL IMPAIRMENT [None]
